FAERS Safety Report 4382275-0 (Version None)
Quarter: 2004Q2

REPORT INFORMATION
  Report Type: 
  Country: None (occurrence: None)
  Receive Date: 20040622
  Receipt Date: 20040610
  Transmission Date: 20050107
  Serious: Yes (Other)
  Sender: FDA-Public Use
  Company Number: PHEH2004US06388

PATIENT

DRUGS (1)
  1. LESCOL [Suspect]

REACTIONS (2)
  - RHABDOMYOLYSIS [None]
  - SURGERY [None]
